FAERS Safety Report 8726295 (Version 2)
Quarter: 2012Q4

REPORT INFORMATION
  Report Type: 
  Country: AU (occurrence: AU)
  Receive Date: 20120816
  Receipt Date: 20120903
  Transmission Date: 20130627
  Serious: Yes (Other)
  Sender: FDA-Public Use
  Company Number: PHHY2012AU070248

PATIENT
  Age: 81 Year
  Sex: Female
  Weight: 58 kg

DRUGS (4)
  1. ACLASTA [Suspect]
     Dosage: 5 mg, UNK
     Route: 042
     Dates: start: 20090321
  2. ACLASTA [Suspect]
     Dosage: 5 mg, UNK
     Route: 042
     Dates: start: 20100311
  3. ACLASTA [Suspect]
     Dosage: 5 mg, UNK
     Route: 042
     Dates: start: 20120823
  4. ARICEPT [Concomitant]
     Indication: DEMENTIA
     Dosage: 1 DF, Daily
     Route: 048
     Dates: start: 2008

REACTIONS (5)
  - Dementia [Not Recovered/Not Resolved]
  - Agitation [Recovering/Resolving]
  - Vitamin D decreased [Unknown]
  - Alcoholism [Unknown]
  - Hypertension [Unknown]
